FAERS Safety Report 9822775 (Version 3)
Quarter: 2014Q2

REPORT INFORMATION
  Report Type: Spontaneous
  Country: US (occurrence: US)
  Receive Date: 20140116
  Receipt Date: 20140414
  Transmission Date: 20141212
  Serious: Yes (Disabling, Other)
  Sender: FDA-Public Use
  Company Number: US-009507513-1401USA005459

PATIENT
  Sex: Female
  Weight: 68.48 kg

DRUGS (5)
  1. JANUMET [Suspect]
     Indication: TYPE 2 DIABETES MELLITUS
     Dosage: 50-500 MG, BID
     Route: 048
     Dates: start: 20100208, end: 201304
  2. JANUVIA [Suspect]
     Dosage: 100 MG, QD
     Route: 048
  3. METFORMIN [Concomitant]
     Indication: TYPE 2 DIABETES MELLITUS
     Dosage: 500 MG, QD
  4. DIABETA [Concomitant]
     Indication: TYPE 2 DIABETES MELLITUS
  5. GLYBURIDE [Concomitant]
     Indication: TYPE 2 DIABETES MELLITUS
     Dosage: UNK
     Dates: end: 20100208

REACTIONS (8)
  - Pancreatic carcinoma metastatic [Not Recovered/Not Resolved]
  - Metastases to liver [Unknown]
  - Joint injury [Unknown]
  - Gastric ulcer [Unknown]
  - Helicobacter infection [Unknown]
  - Anxiety [Unknown]
  - Insomnia [Unknown]
  - Back pain [Unknown]
